FAERS Safety Report 21060668 (Version 1)
Quarter: 2022Q3

REPORT INFORMATION
  Report Type: Spontaneous
  Country: CN (occurrence: None)
  Receive Date: 20220708
  Receipt Date: 20220708
  Transmission Date: 20221026
  Serious: Yes (Other)
  Sender: FDA-Public Use
  Company Number: CN-ROCHE-3129388

PATIENT
  Age: 68 Year
  Sex: Female
  Weight: 62 kg

DRUGS (5)
  1. HERCEPTIN [Suspect]
     Active Substance: TRASTUZUMAB
     Indication: Breast cancer
     Dosage: 8 MG/KG FOR THE FIRST TIME, FOLLOWED BY 6 MG/KG, 372 MG DAY1?THE MOST RECENT DOSE OF TRASTUZUMAB WAS
     Route: 041
     Dates: start: 20210926
  2. PERJETA [Suspect]
     Active Substance: PERTUZUMAB
     Indication: Breast cancer
     Dosage: 840 MG FOR THE FIRST TIME, FOLLOWED BY 420 MG, DAY1?THE MOST RECENT DOSE OF PERTUZUMAB WAS RECEIVED
     Route: 041
     Dates: start: 20210926
  3. PACLITAXEL [Concomitant]
     Active Substance: PACLITAXEL
     Indication: Breast cancer
     Dosage: 125 MG/M2, 200MG, DAY1, DAY8
     Dates: start: 20210926
  4. CARBOPLATIN [Concomitant]
     Active Substance: CARBOPLATIN
     Indication: Breast cancer
     Dosage: DAY 1?REDUCED BY 15% FROM THE FOURTH CYCLE
     Dates: start: 20210926
  5. GRANULOCYTE COLONY-STIMULATING FACTOR NOS [Concomitant]
     Active Substance: GRANULOCYTE COLONY-STIMULATING FACTOR NOS
     Indication: Neutropenia

REACTIONS (2)
  - Myelosuppression [Unknown]
  - Hypoaesthesia [Recovering/Resolving]
